FAERS Safety Report 8117105-4 (Version None)
Quarter: 2012Q1

REPORT INFORMATION
  Report Type: 
  Country: None (occurrence: None)
  Receive Date: 20120206
  Receipt Date: 20120130
  Transmission Date: 20120608
  Serious: Yes (Hospitalization)
  Sender: FDA-Public Use
  Company Number: DE-PFIZER INC-A214620

PATIENT
  Age: 77 Year
  Sex: Male

DRUGS (2)
  1. RULID [Interacting]
     Indication: BRONCHITIS
     Dosage: 150MG, DAILY
     Route: 048
     Dates: start: 20020318, end: 20020322
  2. SERTRALINE HYDROCHLORIDE [Suspect]
     Indication: DEPRESSION
     Dosage: 50 MG, DAILY
     Route: 048
     Dates: start: 20010801, end: 20020320

REACTIONS (6)
  - BRONCHITIS [None]
  - DRUG INTERACTION [None]
  - HAEMOGLOBIN DECREASED [None]
  - GALLBLADDER DISORDER [None]
  - HEPATITIS CHOLESTATIC [None]
  - CHOLELITHIASIS [None]
